FAERS Safety Report 14614390 (Version 1)
Quarter: 2018Q1

REPORT INFORMATION
  Report Type: Spontaneous
  Country: US (occurrence: US)
  Receive Date: 20180308
  Receipt Date: 20180308
  Transmission Date: 20180509
  Serious: Yes (Disabling)
  Sender: FDA-Public Use
  Company Number: None

PATIENT
  Age: 34 Year
  Sex: Female
  Weight: 63 kg

DRUGS (3)
  1. TRINESSA [Suspect]
     Active Substance: ETHINYL ESTRADIOL\NORGESTIMATE
     Indication: CONTRACEPTION
     Route: 048
  2. MINIPILL (UNSPECIFIED) [Suspect]
     Active Substance: UNSPECIFIED INGREDIENT
  3. NUVARING [Suspect]
     Active Substance: ETHINYL ESTRADIOL\ETONOGESTREL
     Indication: CONTRACEPTION
     Route: 067

REACTIONS (8)
  - Dysmenorrhoea [None]
  - Panic attack [None]
  - Alopecia [None]
  - Visual impairment [None]
  - Balance disorder [None]
  - Hemiplegic migraine [None]
  - Euphoric mood [None]
  - Chloasma [None]

NARRATIVE: CASE EVENT DATE: 20131101
